FAERS Safety Report 3389764 (Version 2)
Quarter: 2014Q2

REPORT INFORMATION
  Report Type: Report from Study
  Country: FR (occurrence: FR)
  Receive Date: 19991119
  Receipt Date: 20140418
  Transmission Date: 20141212
  Serious: Yes (Hospitalization)
  Sender: FDA-Public Use
  Company Number: 10170181

PATIENT
  Age: 31 Year
  Sex: Female

DRUGS (7)
  1. ZERIT CAPS [Suspect]
     Indication: HIV INFECTION
     Dosage: DURING THE WHOLE PREGNANCY?NO OF COURSES 1
     Route: 048
     Dates: end: 19880619
  2. EPIVIR [Suspect]
     Indication: HIV INFECTION
     Dosage: DURING THE WHOLE PREGNANCY?NO OF COURSES 1
     Route: 048
     Dates: end: 19880619
  3. RETROVIR [Suspect]
     Indication: ANTIRETROVIRAL THERAPY
     Dosage: NO OF COURSES 1
     Route: 042
  4. PRIMPERAN [Concomitant]
  5. SMECTA [Concomitant]
  6. GAVISCON [Concomitant]
  7. VITAMIN B + MAGNESIUM [Concomitant]
     Route: 048

REACTIONS (4)
  - Maternal exposure during pregnancy [Recovered/Resolved]
  - Dyspepsia [Unknown]
  - Gastroenteritis [Unknown]
  - Live birth [Unknown]
